FAERS Safety Report 14148748 (Version 1)
Quarter: 2017Q4

REPORT INFORMATION
  Report Type: Spontaneous
  Country: CN (occurrence: CN)
  Receive Date: 20171101
  Receipt Date: 20171101
  Transmission Date: 20180321
  Serious: Yes (Other)
  Sender: FDA-Public Use
  Company Number: CN-BAYER-2017-203537

PATIENT
  Sex: Male

DRUGS (1)
  1. GLUCOBAY [Suspect]
     Active Substance: ACARBOSE
     Indication: DIABETES MELLITUS
     Dosage: 50 MG, UNK
     Route: 048

REACTIONS (2)
  - Azotaemia [None]
  - Renal failure [None]

NARRATIVE: CASE EVENT DATE: 2017
